FAERS Safety Report 7120516-7 (Version None)
Quarter: 2010Q4

REPORT INFORMATION
  Report Type: 
  Country: None (occurrence: None)
  Receive Date: 20101124
  Receipt Date: 20101118
  Transmission Date: 20110411
  Serious: Yes (Hospitalization)
  Sender: FDA-Public Use
  Company Number: US-PFIZER INC-2010153223

PATIENT

DRUGS (1)
  1. EPLERENONE [Suspect]
     Dosage: 25 MG, UNK

REACTIONS (2)
  - HEAD AND NECK CANCER [None]
  - NEOPLASM RECURRENCE [None]
